FAERS Safety Report 5294471-9 (Version None)
Quarter: 2007Q2

REPORT INFORMATION
  Report Type: 
  Country: None (occurrence: None)
  Receive Date: 20070409
  Receipt Date: 20070409
  Transmission Date: 20071010
  Serious: Yes (Hospitalization)
  Sender: FDA-Public Use
  Company Number: None

PATIENT
  Sex: Female
  Weight: 63 kg

DRUGS (2)
  1. FLUOROURACIL [Suspect]
     Dosage: 6680 MG
  2. MITOMYCIN-C BULK POWDER [Suspect]
     Dosage: 16.7 MG

REACTIONS (7)
  - HAEMOGLOBIN DECREASED [None]
  - LUNG CONSOLIDATION [None]
  - LUNG INFILTRATION [None]
  - NEUTROPHIL COUNT DECREASED [None]
  - PHARYNGOLARYNGEAL PAIN [None]
  - PLATELET COUNT DECREASED [None]
  - WHITE BLOOD CELL COUNT DECREASED [None]
